FAERS Safety Report 7688552-X (Version None)
Quarter: 2011Q3

REPORT INFORMATION
  Report Type: 
  Country: None (occurrence: None)
  Receive Date: 20110817
  Receipt Date: 20110817
  Transmission Date: 20111222
  Serious: Yes (Hospitalization)
  Sender: FDA-Public Use
  Company Number: None

PATIENT
  Sex: Male
  Weight: 69.2 kg

DRUGS (2)
  1. AMOXICILLIN [Concomitant]
     Indication: UPPER RESPIRATORY TRACT INFECTION
     Dosage: 500 MG
     Route: 048
     Dates: start: 20110506, end: 20110509
  2. IBUPROFEN [Suspect]
     Indication: MYALGIA
     Dosage: 400 MG
     Route: 048
     Dates: start: 20110506, end: 20110510

REACTIONS (9)
  - NAUSEA [None]
  - TUBULOINTERSTITIAL NEPHRITIS [None]
  - VOMITING [None]
  - PROTEINURIA [None]
  - HAEMATURIA [None]
  - ASTHENIA [None]
  - BLOOD CREATININE INCREASED [None]
  - BACK PAIN [None]
  - BLOOD UREA INCREASED [None]
